FAERS Safety Report 4704557-2 (Version None)
Quarter: 2005Q2

REPORT INFORMATION
  Report Type: 
  Country: None (occurrence: None)
  Receive Date: 20050630
  Receipt Date: 20050620
  Transmission Date: 20051028
  Serious: Yes (Disabling)
  Sender: FDA-Public Use
  Company Number: HQWYE127118MAR03

PATIENT
  Age: 40 Year
  Sex: Female

DRUGS (5)
  1. DIMETAPP [Suspect]
     Dosage: ORAL
     Route: 048
     Dates: start: 20000701
  2. ALKA-SELTZER PLUS (ACETYLSALICYLIC ACID/CHLORPHENAMINE MALEATE/PHENYLP [Suspect]
     Dosage: ORAL
     Route: 048
     Dates: start: 20000701
  3. ALKA-SELTZER PLUS COLD (ACETYSALICYLIC ACID/CHLORPHENAMINE MALEATE/PHE [Suspect]
     Dosage: ORAL
     Route: 048
     Dates: start: 20000701
  4. DIMETAPP [Suspect]
     Indication: NASOPHARYNGITIS
     Dosage: ORAL
     Route: 048
     Dates: start: 19950101, end: 20000706
  5. DIMETAPP [Suspect]
     Indication: SINUS DISORDER
     Dosage: ORAL
     Route: 048
     Dates: start: 19950101, end: 20000706

REACTIONS (2)
  - CONVULSION [None]
  - HAEMORRHAGIC STROKE [None]
